FAERS Safety Report 4685878-9 (Version None)
Quarter: 2005Q2

REPORT INFORMATION
  Report Type: 
  Country: None (occurrence: None)
  Receive Date: 20050606
  Receipt Date: 20050606
  Transmission Date: 20051028
  Serious: Yes (Other)
  Sender: FDA-Public Use
  Company Number: None

PATIENT
  Sex: Male
  Weight: 75.4 kg

DRUGS (2)
  1. CISPLATIN [Suspect]
     Indication: NEOPLASM MALIGNANT
     Dosage: 100 MG/M2 ON DAYS 1 AND 22
     Dates: start: 20050501
  2. RADIATION [Suspect]
     Indication: NEOPLASM MALIGNANT
     Dosage: 72 GY/42 FX, FOR 6 WEKS

REACTIONS (2)
  - NAUSEA [None]
  - VOMITING [None]
